FAERS Safety Report 10223938 (Version 2)
Quarter: 2014Q2

REPORT INFORMATION
  Report Type: Spontaneous
  Country: US (occurrence: US)
  Receive Date: 20140609
  Receipt Date: 20140609
  Transmission Date: 20141212
  Serious: No
  Sender: FDA-Public Use
  Company Number: US-DRREDDYS-USA/USA/14/0039302

PATIENT
  Age: 58 Year
  Sex: Female

DRUGS (3)
  1. MUCINEX ALLERGY (FEXOFENADINE) [Suspect]
     Indication: THROAT IRRITATION
     Route: 048
  2. MUCINEX ALLERGY (FEXOFENADINE) [Suspect]
     Indication: COUGH
  3. MUCINEX ALLERGY (FEXOFENADINE) [Suspect]
     Indication: LACRIMATION INCREASED

REACTIONS (2)
  - Drug ineffective [Unknown]
  - Product quality issue [Unknown]
